FAERS Safety Report 5323411-9 (Version None)
Quarter: 2007Q2

REPORT INFORMATION
  Report Type: 
  Country: None (occurrence: None)
  Receive Date: 20070514
  Receipt Date: 20070504
  Transmission Date: 20071010
  Serious: Yes (Hospitalization)
  Sender: FDA-Public Use
  Company Number: CA-BAYER-200710239GDS

PATIENT
  Age: 21 Year
  Sex: Male
  Weight: 82 kg

DRUGS (2)
  1. ASPIRIN [Suspect]
     Indication: COMPLETED SUICIDE
     Dosage: UNIT DOSE: 325 MG
     Route: 048
     Dates: start: 20041119, end: 20041119
  2. TYLENOL [Suspect]
     Indication: COMPLETED SUICIDE
     Dosage: UNIT DOSE: 325 MG
     Route: 048
     Dates: start: 20041119, end: 20041119

REACTIONS (6)
  - ABDOMINAL PAIN [None]
  - BACK PAIN [None]
  - FLANK PAIN [None]
  - INTENTIONAL OVERDOSE [None]
  - RENAL FAILURE ACUTE [None]
  - VOMITING [None]
